FAERS Safety Report 5125801-6 (Version None)
Quarter: 2006Q4

REPORT INFORMATION
  Report Type: 
  Country: None (occurrence: None)
  Receive Date: 20061010
  Receipt Date: 20061010
  Transmission Date: 20070319
  Serious: Yes (Disabling)
  Sender: FDA-Public Use
  Company Number: None

PATIENT
  Age: 55 Year
  Sex: Female
  Weight: 100.9 kg

DRUGS (2)
  1. OPTIMARK [Suspect]
     Indication: CHEST PAIN
     Dosage: ONCE IV BOLUS
     Route: 040
     Dates: start: 20060619, end: 20060703
  2. MRI CARDIAC OPTIMARK CONTRAST [Concomitant]

REACTIONS (7)
  - ARTHRALGIA [None]
  - ASTHENIA [None]
  - CONTRAST MEDIA REACTION [None]
  - OEDEMA PERIPHERAL [None]
  - PAIN IN EXTREMITY [None]
  - RASH ERYTHEMATOUS [None]
  - SKIN WARM [None]
